FAERS Safety Report 8008213 (Version 3)
Quarter: 2013Q1

REPORT INFORMATION
  Report Type: Report from Study
  Country: ES (occurrence: ES)
  Receive Date: 20110624
  Receipt Date: 20130307
  Transmission Date: 20140127
  Serious: Yes (Hospitalization)
  Sender: FDA-Public Use
  Company Number: ES-MPIJNJ-2011-02058

PATIENT
  Sex: 0

DRUGS (3)
  1. VELCADE [Suspect]
     Indication: PLASMA CELL MYELOMA
     Dosage: 1.98 MG, UNK
     Route: 042
     Dates: start: 20110411, end: 20120606
  2. MELPHALAN [Suspect]
     Indication: PLASMA CELL MYELOMA
     Dosage: 14 MG, UNK
     Route: 048
     Dates: start: 20110411, end: 20110602
  3. PREDNISONE [Suspect]
     Indication: PLASMA CELL MYELOMA
     Dosage: 90 MG, UNK
     Route: 048
     Dates: start: 20110411, end: 20110602

REACTIONS (2)
  - Gastrointestinal hypomotility [Recovered/Resolved]
  - Respiratory tract infection [Recovered/Resolved]
